FAERS Safety Report 6998641-0 (Version None)
Quarter: 2010Q3

REPORT INFORMATION
  Report Type: 
  Country: None (occurrence: None)
  Receive Date: 20100920
  Receipt Date: 20100107
  Transmission Date: 20110219
  Serious: No
  Sender: FDA-Public Use
  Company Number: US-ASTRAZENECA-2009SE31945

PATIENT
  Age: 86 Year
  Sex: Female
  Weight: 54.4 kg

DRUGS (9)
  1. SEROQUEL [Suspect]
     Route: 048
  2. SEROQUEL [Suspect]
     Route: 048
     Dates: start: 20091201
  3. EFFEXOR [Concomitant]
  4. TRAZODONE HCL [Concomitant]
  5. SYNTHROID [Concomitant]
  6. COZAAR [Concomitant]
  7. LASIX [Concomitant]
     Dosage: AS REQUIRED
  8. OXYCONTIN [Concomitant]
  9. OXYCODONE HCL [Concomitant]
     Dosage: AS REQUIRED

REACTIONS (7)
  - ANXIETY [None]
  - BELLIGERENCE [None]
  - CONFUSIONAL STATE [None]
  - DISTURBANCE IN ATTENTION [None]
  - DYSPHAGIA [None]
  - HYPERHIDROSIS [None]
  - MUSCLE STRAIN [None]
